FAERS Safety Report 4650038-4 (Version None)
Quarter: 2005Q2

REPORT INFORMATION
  Report Type: 
  Country: None (occurrence: None)
  Receive Date: 20050502
  Receipt Date: 20050421
  Transmission Date: 20051028
  Serious: Yes (Hospitalization)
  Sender: FDA-Public Use
  Company Number: AU-ROCHE-402435

PATIENT
  Sex: Male

DRUGS (2)
  1. PEGASYS [Suspect]
     Indication: DRUG USE FOR UNKNOWN INDICATION
     Dosage: REDUCED DOSE.
     Route: 058
  2. PEGASYS [Suspect]
     Route: 058

REACTIONS (2)
  - NECROTISING FASCIITIS [None]
  - NEUTROPENIA [None]
